FAERS Safety Report 7174660-9 (Version None)
Quarter: 2010Q4

REPORT INFORMATION
  Report Type: 
  Country: None (occurrence: None)
  Receive Date: 20101219
  Receipt Date: 20101209
  Transmission Date: 20110411
  Serious: Yes (Other)
  Sender: FDA-Public Use
  Company Number: IN-ALLERGAN-1016163US

PATIENT
  Age: 26 Year
  Sex: Male

DRUGS (2)
  1. PREDNISOLONE [Suspect]
     Indication: KERATITIS
     Dosage: THREE TIMES A DAY
  2. PREDNISOLONE [Suspect]
     Dosage: TWICE A DAY

REACTIONS (2)
  - CONJUNCTIVAL ULCER [None]
  - KERATITIS FUNGAL [None]
